FAERS Safety Report 22340023 (Version 2)
Quarter: 2023Q2

REPORT INFORMATION
  Report Type: Spontaneous
  Country: PL (occurrence: PL)
  Receive Date: 20230518
  Receipt Date: 20230627
  Transmission Date: 20230722
  Serious: Yes (Disabling, Other)
  Sender: FDA-Public Use
  Company Number: PL-BAYER-2021-194015

PATIENT
  Age: 68 Year
  Sex: Female

DRUGS (20)
  1. CIPROFLOXACIN [Interacting]
     Active Substance: CIPROFLOXACIN
     Indication: Discharge
     Dosage: 1000 MILLIGRAM, QD
     Route: 048
  2. ALPRAZOLAM [Interacting]
     Active Substance: ALPRAZOLAM
     Indication: Depression
     Dosage: 1 MG
  3. ALPRAZOLAM [Interacting]
     Active Substance: ALPRAZOLAM
     Indication: Antidepressant therapy
     Dosage: 0.5 MILLIGRAM, BID
  4. ALPRAZOLAM [Interacting]
     Active Substance: ALPRAZOLAM
     Indication: Depression
     Dosage: 2 X 0.5 MG SR
  5. CELECOXIB [Interacting]
     Active Substance: CELECOXIB
     Indication: Arthritis
     Dosage: 400 MG
  6. CELECOXIB [Interacting]
     Active Substance: CELECOXIB
     Indication: Arthritis
     Dosage: 400 MILLIGRAM, QD
  7. CELECOXIB [Interacting]
     Active Substance: CELECOXIB
     Indication: Arthritis
  8. DULOXETINE [Interacting]
     Active Substance: DULOXETINE
     Indication: Depression
  9. DULOXETINE [Interacting]
     Active Substance: DULOXETINE
     Indication: Depression
     Dosage: 60 MILLIGRAM, QD
  10. METOPROLOL [Interacting]
     Active Substance: METOPROLOL
     Indication: Depression
  11. METOPROLOL [Interacting]
     Active Substance: METOPROLOL
     Indication: Palpitations
     Dosage: 100 MILLIGRAM, QD
  12. METOPROLOL [Interacting]
     Active Substance: METOPROLOL
     Indication: Depression
     Dosage: 100 MILLIGRAM
  13. DEXAMETHASONE [Suspect]
     Active Substance: DEXAMETHASONE
     Indication: Eye pain
     Dosage: EYE DROPS
     Route: 047
  14. DEXAMETHASONE [Suspect]
     Active Substance: DEXAMETHASONE
     Indication: Eye pain
     Dosage: EYE DROPS
     Route: 047
  15. GENTAMICIN [Suspect]
     Active Substance: GENTAMICIN
     Indication: Eye pain
     Dosage: EYE DROPS
     Route: 047
  16. GENTAMICIN [Suspect]
     Active Substance: GENTAMICIN
     Indication: Eye pain
     Dosage: EYE DROPS
     Route: 047
  17. BROMFENAC [Suspect]
     Active Substance: BROMFENAC SODIUM
     Indication: Eye pain
     Dosage: EYE DROPS
     Route: 047
  18. BROMFENAC [Suspect]
     Active Substance: BROMFENAC SODIUM
     Indication: Eye pain
     Dosage: EYE DROPS
     Route: 047
  19. PREGABALIN [Concomitant]
     Active Substance: PREGABALIN
     Indication: Pain
  20. ETORICOXIB [Concomitant]
     Active Substance: ETORICOXIB
     Indication: Pain

REACTIONS (19)
  - Hallucination, visual [Recovered/Resolved]
  - Drug interaction [Unknown]
  - Depression [None]
  - Drug ineffective [Unknown]
  - Depressed mood [Recovered/Resolved]
  - Feeling abnormal [Recovered/Resolved]
  - Anhedonia [Recovered/Resolved]
  - Palpitations [Recovered/Resolved]
  - Anxiety disorder [Recovered/Resolved]
  - Headache [Unknown]
  - Vitreous floaters [Recovered/Resolved]
  - Visual impairment [Recovered/Resolved]
  - Eye pain [Recovered/Resolved]
  - Hyperhidrosis [Recovered/Resolved]
  - Eye irritation [Recovered/Resolved]
  - Excessive eye blinking [Unknown]
  - Visual field defect [Recovered/Resolved]
  - Visual impairment [Recovered/Resolved]
  - Eye irritation [Recovered/Resolved]
